FAERS Safety Report 6857368-6 (Version None)
Quarter: 2010Q3

REPORT INFORMATION
  Report Type: 
  Country: None (occurrence: None)
  Receive Date: 20100719
  Receipt Date: 20100707
  Transmission Date: 20110219
  Serious: Yes (Other)
  Sender: FDA-Public Use
  Company Number: BE-PFIZER INC-2010084436

PATIENT
  Age: 72 Year

DRUGS (7)
  1. LYRICA [Suspect]
     Indication: MUSCULOSKELETAL PAIN
     Dosage: 600 MG, 1X/DAY
     Route: 048
     Dates: start: 20100622
  2. LYRICA [Suspect]
     Indication: CERVICOBRACHIAL SYNDROME
  3. SINTROM [Concomitant]
  4. LIPITOR [Concomitant]
  5. TORISEL [Concomitant]
  6. CIPRALEX [Concomitant]
  7. PROPRANOLOL [Concomitant]

REACTIONS (4)
  - ATAXIA [None]
  - CEREBROVASCULAR ACCIDENT [None]
  - DIPLOPIA [None]
  - TREMOR [None]
